FAERS Safety Report 13778182 (Version 2)
Quarter: 2017Q3

REPORT INFORMATION
  Report Type: Spontaneous
  Country: JP (occurrence: JP)
  Receive Date: 20170721
  Receipt Date: 20170811
  Transmission Date: 20171127
  Serious: Yes (Hospitalization)
  Sender: FDA-Public Use
  Company Number: JP-ORION CORPORATION ORION PHARMA-ENT 2017-0118

PATIENT
  Sex: Male

DRUGS (2)
  1. COMTAN [Suspect]
     Active Substance: ENTACAPONE
     Indication: PARKINSON^S DISEASE
     Route: 048
  2. MENESIT [Concomitant]
     Active Substance: CARBIDOPA\LEVODOPA
     Route: 065

REACTIONS (3)
  - Wrong technique in product usage process [Unknown]
  - Asthenia [Unknown]
  - Dysphagia [Unknown]
